FAERS Safety Report 18479306 (Version 1)
Quarter: 2020Q4

REPORT INFORMATION
  Report Type: Spontaneous
  Country: DE (occurrence: DE)
  Receive Date: 20201109
  Receipt Date: 20201109
  Transmission Date: 20210114
  Serious: Yes (Other)
  Sender: FDA-Public Use
  Company Number: DE-AUROBINDO-AUR-APL-2020-054942

PATIENT
  Age: 79 Year
  Sex: Male

DRUGS (6)
  1. MOXONIDINE [Suspect]
     Active Substance: MOXONIDINE
     Indication: CARDIAC FAILURE
     Dosage: UNK UNK, TWO TIMES A DAY1-0-1
     Route: 065
     Dates: start: 202007
  2. BISOPROLOL [Suspect]
     Active Substance: BISOPROLOL
     Indication: CARDIAC FAILURE
     Dosage: 5 MILLIGRAM -0- 7.5 MG
     Route: 065
     Dates: start: 202007
  3. TELMISARTAN. [Suspect]
     Active Substance: TELMISARTAN
     Indication: CARDIAC FAILURE
     Dosage: 20 MILLIGRAM, ONCE A DAY (1-0-0)
     Route: 065
     Dates: start: 202007
  4. RIVAROXABAN [Suspect]
     Active Substance: RIVAROXABAN
     Indication: CARDIAC FAILURE
     Dosage: 20 MILLIGRAM, ONCE A DAY (1-0-0)
     Route: 065
     Dates: start: 202007
  5. FINASTERIDE. [Suspect]
     Active Substance: FINASTERIDE
     Indication: CARDIAC FAILURE
     Dosage: 5 MILLIGRAM, ONCE A DAY (0-0-1)
     Route: 065
     Dates: start: 202007
  6. TORASEMIDE [Suspect]
     Active Substance: TORSEMIDE
     Indication: CARDIAC FAILURE
     Dosage: 10 MILLIGRAM, ONCE A DAY (1-0-0)
     Route: 065
     Dates: start: 202007

REACTIONS (7)
  - Listless [Unknown]
  - Limb discomfort [Unknown]
  - Dyspnoea [Unknown]
  - Panic attack [Unknown]
  - Angina pectoris [Unknown]
  - Pulmonary oedema [Unknown]
  - Asthenia [Unknown]

NARRATIVE: CASE EVENT DATE: 2020
